FAERS Safety Report 21565645 (Version 2)
Quarter: 2023Q1

REPORT INFORMATION
  Report Type: Report from Study
  Country: US (occurrence: US)
  Receive Date: 20221108
  Receipt Date: 20230102
  Transmission Date: 20230418
  Serious: No
  Sender: FDA-Public Use
  Company Number: US-ABBVIE-4157789

PATIENT
  Sex: Female

DRUGS (2)
  1. RINVOQ [Suspect]
     Active Substance: UPADACITINIB
     Indication: Psoriasis
     Route: 048
  2. NUVARING [Concomitant]
     Active Substance: ETHINYL ESTRADIOL\ETONOGESTREL
     Indication: Contraception
     Route: 065

REACTIONS (6)
  - Amenorrhoea [Not Recovered/Not Resolved]
  - Menstrual disorder [Recovering/Resolving]
  - Weight increased [Unknown]
  - Headache [Recovering/Resolving]
  - Abdominal distension [Unknown]
  - Acne [Recovering/Resolving]
